FAERS Safety Report 23249757 (Version 5)
Quarter: 2024Q2

REPORT INFORMATION
  Report Type: Spontaneous
  Country: US (occurrence: US)
  Receive Date: 20231201
  Receipt Date: 20240527
  Transmission Date: 20240716
  Serious: Yes (Hospitalization, Other)
  Sender: FDA-Public Use
  Company Number: US-BRISTOL-MYERS SQUIBB COMPANY-2023-173751

PATIENT
  Age: 74 Year
  Sex: Female
  Weight: 58.06 kg

DRUGS (5)
  1. REVLIMID [Suspect]
     Active Substance: LENALIDOMIDE
     Indication: Plasma cell myeloma
     Dosage: D1-14 Q 21 DAYS
     Route: 048
     Dates: start: 20231107
  2. REVLIMID [Suspect]
     Active Substance: LENALIDOMIDE
     Dosage: D1-14 Q 21 DAYS
     Route: 048
     Dates: start: 20231108, end: 20231201
  3. REVLIMID [Suspect]
     Active Substance: LENALIDOMIDE
     Dosage: DAILY 1-14 THEN 7 DAYS OFF
     Route: 048
     Dates: start: 20240216
  4. DARZALEX [Concomitant]
     Active Substance: DARATUMUMAB
     Indication: Product used for unknown indication
     Route: 042
  5. DEXAMETHASONE [Concomitant]
     Active Substance: DEXAMETHASONE
     Indication: Product used for unknown indication
     Route: 048

REACTIONS (11)
  - Pain [Recovered/Resolved]
  - Joint swelling [Unknown]
  - Dehydration [Unknown]
  - Decreased appetite [Unknown]
  - Product distribution issue [Unknown]
  - Off label use [Unknown]
  - Illness [Recovered/Resolved]
  - Haemoglobin decreased [Recovered/Resolved]
  - Blood potassium decreased [Not Recovered/Not Resolved]
  - Weight decreased [Recovered/Resolved]
  - Pneumonia [Recovered/Resolved]

NARRATIVE: CASE EVENT DATE: 20231101
